FAERS Safety Report 13855448 (Version 2)
Quarter: 2017Q3

REPORT INFORMATION
  Report Type: Spontaneous
  Country: US (occurrence: US)
  Receive Date: 20170810
  Receipt Date: 20170810
  Transmission Date: 20171127
  Serious: Yes (Hospitalization)
  Sender: FDA-Public Use
  Company Number: US-BRACCO-2017US03495

PATIENT
  Age: 85 Year
  Sex: Female

DRUGS (1)
  1. ISOVUE-M 200 [Suspect]
     Active Substance: IOPAMIDOL
     Dosage: 20 ML, SINGLE
     Route: 037
     Dates: start: 20170718, end: 20170718

REACTIONS (2)
  - Electroencephalogram abnormal [Recovered/Resolved]
  - Mental status changes [Recovered/Resolved]

NARRATIVE: CASE EVENT DATE: 20170722
